FAERS Safety Report 9496805 (Version 1)
Quarter: 2013Q3

REPORT INFORMATION
  Report Type: Spontaneous
  Country: DE (occurrence: DE)
  Receive Date: 20130904
  Receipt Date: 20130904
  Transmission Date: 20140515
  Serious: Yes (Other)
  Sender: FDA-Public Use
  Company Number: DE-NAPPMUNDI-DEU-2013-0012245

PATIENT
  Age: 85 Year
  Sex: Male

DRUGS (2)
  1. TARGIN RETARDTABLETTEN [Suspect]
     Indication: PRODUCT USED FOR UNKNOWN INDICATION
     Dosage: 40/20 MG, BID
     Route: 048
     Dates: start: 201308
  2. OXYGESIC 40 MG [Suspect]
     Indication: PRODUCT USED FOR UNKNOWN INDICATION
     Dosage: 40 MG, BID
     Route: 048
     Dates: end: 201308

REACTIONS (2)
  - Fall [Unknown]
  - Femur fracture [Unknown]
